FAERS Safety Report 5863768-3 (Version None)
Quarter: 2008Q3

REPORT INFORMATION
  Report Type: 
  Country: None (occurrence: None)
  Receive Date: 20080827
  Receipt Date: 20080818
  Transmission Date: 20090109
  Serious: Yes (Other)
  Sender: FDA-Public Use
  Company Number: 2008AP002059

PATIENT
  Age: 69 Year
  Sex: Female
  Weight: 85 kg

DRUGS (8)
  1. GABAPENTIN [Suspect]
     Indication: ANXIETY
     Dosage: PO
     Route: 048
     Dates: start: 20080202
  2. METOPROLOL SUCCINATE [Concomitant]
  3. RAMELTEON [Concomitant]
  4. OMEPRAZOLE [Concomitant]
  5. CLONAZEPAM [Concomitant]
  6. LEVOTHYROXINE SODIUM [Concomitant]
  7. AMLODIPINE BESYLATE [Concomitant]
  8. VALSARTAN [Concomitant]

REACTIONS (6)
  - DRY SKIN [None]
  - FLUSHING [None]
  - KNEE OPERATION [None]
  - LIMB DISCOMFORT [None]
  - OEDEMA PERIPHERAL [None]
  - SKIN EXFOLIATION [None]
